FAERS Safety Report 18356333 (Version 1)
Quarter: 2020Q4

REPORT INFORMATION
  Report Type: Spontaneous
  Country: FR (occurrence: FR)
  Receive Date: 20201007
  Receipt Date: 20201007
  Transmission Date: 20210114
  Serious: Yes (Hospitalization)
  Sender: FDA-Public Use
  Company Number: FR-JNJFOC-20201008227

PATIENT
  Age: 46 Year
  Sex: Male
  Weight: 55 kg

DRUGS (3)
  1. TRAMADOL/APAP [Suspect]
     Active Substance: ACETAMINOPHEN\TRAMADOL
     Indication: PELVIC PAIN
     Dosage: 6 DOSAGE FORM, 1/DAY
     Route: 048
     Dates: start: 20200828, end: 20200905
  2. ONDANSETRON [Suspect]
     Active Substance: ONDANSETRON
     Indication: VOMITING
     Dosage: UNK
     Route: 048
  3. OFLOXACINE [Concomitant]
     Active Substance: OFLOXACIN
     Indication: URINARY TRACT INFECTION
     Dosage: 200 MILLIGRAM, 1/DAY
     Route: 048
     Dates: start: 20200828, end: 20200905

REACTIONS (2)
  - Subileus [Not Recovered/Not Resolved]
  - Ileus [Not Recovered/Not Resolved]

NARRATIVE: CASE EVENT DATE: 20200831
